FAERS Safety Report 7554062-3 (Version None)
Quarter: 2011Q2

REPORT INFORMATION
  Report Type: 
  Country: None (occurrence: None)
  Receive Date: 20110617
  Receipt Date: 20110616
  Transmission Date: 20111010
  Serious: Yes (Hospitalization)
  Sender: FDA-Public Use
  Company Number: US-PFIZER INC-2006070999

PATIENT
  Sex: Male

DRUGS (16)
  1. POTASSIUM CHLORIDE [Concomitant]
     Dosage: UNK
     Route: 048
     Dates: start: 20000101
  2. FLUTICASONE PROPIONATE [Concomitant]
     Dosage: UNK
     Route: 048
     Dates: start: 19950101
  3. HERBAL EXTRACTS NOS [Concomitant]
     Dosage: UNK
     Route: 048
     Dates: start: 20050901
  4. ZOLPIDEM [Concomitant]
     Dosage: UNK
     Route: 048
     Dates: start: 20050201
  5. METOPROLOL TARTRATE [Concomitant]
     Dosage: UNK
     Route: 048
     Dates: start: 20040201
  6. ACETYL SALICYLIC ACID COMPOUND TAB [Concomitant]
     Dosage: UNK
     Route: 048
     Dates: start: 20030101
  7. COMPAZINE [Concomitant]
     Dosage: UNK
     Route: 048
     Dates: start: 20030101
  8. CELECOXIB [Concomitant]
     Dosage: UNK
     Route: 048
     Dates: start: 20051001
  9. DOCUSATE [Concomitant]
     Dosage: UNK
     Route: 048
     Dates: start: 20040101
  10. OLANZAPINE [Concomitant]
     Dosage: UNK
     Route: 048
     Dates: start: 20060122
  11. SUNITINIB MALATE [Suspect]
     Indication: RENAL CELL CARCINOMA
     Dosage: 37.5 MG, 1X/DAY
     Route: 048
     Dates: start: 20051115, end: 20060529
  12. MAXZIDE [Concomitant]
     Dosage: UNK
     Route: 048
     Dates: start: 19950101
  13. GEMFIBROZIL [Concomitant]
     Dosage: UNK
     Route: 048
     Dates: start: 20001101
  14. VALSARTAN [Concomitant]
     Dosage: UNK
     Route: 048
     Dates: start: 20051112
  15. OXYCONTIN [Concomitant]
     Dosage: UNK
     Route: 048
     Dates: start: 20031101
  16. OXYCODONE HCL [Concomitant]
     Dosage: UNK
     Route: 048
     Dates: start: 20031101

REACTIONS (14)
  - DYSPNOEA [None]
  - INTERNATIONAL NORMALISED RATIO INCREASED [None]
  - ALANINE AMINOTRANSFERASE INCREASED [None]
  - EJECTION FRACTION DECREASED [None]
  - ANAEMIA [None]
  - ISCHAEMIC HEPATITIS [None]
  - RENAL FAILURE ACUTE [None]
  - HYPOTENSION [None]
  - BLOOD CREATINE PHOSPHOKINASE INCREASED [None]
  - DEHYDRATION [None]
  - ASTHENIA [None]
  - COUGH [None]
  - ASPARTATE AMINOTRANSFERASE INCREASED [None]
  - HYPERHIDROSIS [None]
